FAERS Safety Report 8600277-2 (Version None)
Quarter: 2012Q3

REPORT INFORMATION
  Report Type: 
  Country: None (occurrence: None)
  Receive Date: 20120817
  Receipt Date: 20120810
  Transmission Date: 20120928
  Serious: No
  Sender: FDA-Public Use
  Company Number: US-BIOGENIDEC-2012BI031145

PATIENT
  Age: 55 Year
  Sex: Male

DRUGS (1)
  1. TYSABRI [Suspect]
     Indication: MULTIPLE SCLEROSIS
     Route: 042
     Dates: start: 20090805, end: 20111108

REACTIONS (5)
  - INTERVERTEBRAL DISC PROTRUSION [None]
  - DECREASED APPETITE [None]
  - FALL [None]
  - URINARY RETENTION [None]
  - FATIGUE [None]
